FAERS Safety Report 5012062-1 (Version None)
Quarter: 2006Q2

REPORT INFORMATION
  Report Type: 
  Country: None (occurrence: None)
  Receive Date: 20060526
  Receipt Date: 20060518
  Transmission Date: 20061013
  Serious: Yes (Other)
  Sender: FDA-Public Use
  Company Number: 100#08#2006-00804

PATIENT
  Age: 65 Year
  Sex: Male

DRUGS (9)
  1. CEFUROXIM SODIUM [Suspect]
     Dosage: 1.5G THREE TIMES PER DAY
     Route: 042
  2. CEFTAZIDIME [Suspect]
     Dosage: 2G TWICE PER DAY
     Route: 042
  3. INSULIN [Concomitant]
     Route: 065
  4. METFORMIN [Concomitant]
     Route: 065
  5. RAMIPRIL [Concomitant]
     Route: 065
  6. INDAPAMIDE [Concomitant]
     Route: 065
  7. GABAPENTIN [Concomitant]
     Route: 065
  8. CIPROFLOXACIN [Concomitant]
     Route: 065
  9. ALLOPURINOL [Concomitant]
     Route: 065

REACTIONS (4)
  - CONFUSIONAL STATE [None]
  - MYOCLONUS [None]
  - PNEUMONIA ASPIRATION [None]
  - SYNCOPE [None]
